FAERS Safety Report 7477826-3 (Version None)
Quarter: 2011Q2

REPORT INFORMATION
  Report Type: 
  Country: None (occurrence: None)
  Receive Date: 20110513
  Receipt Date: 20110429
  Transmission Date: 20111010
  Serious: Yes (Hospitalization, Other)
  Sender: FDA-Public Use
  Company Number: US-ELI_LILLY_AND_COMPANY-US201002002084

PATIENT
  Sex: Male

DRUGS (9)
  1. FORTEO [Suspect]
     Indication: OSTEOPOROSIS
     Dosage: 20 UG, DAILY (1/D)
     Route: 065
     Dates: start: 20090101
  2. FINASTERIDE [Concomitant]
     Dosage: 5 MG, QD
  3. MULTI-VITAMIN [Concomitant]
  4. ADVAIR DISKUS 100/50 [Concomitant]
     Dosage: UNK, BID
     Route: 055
  5. FORTEO [Suspect]
     Dosage: 20 UG, QD
  6. CALCIUM [Concomitant]
     Dosage: 1200 MG, QD
  7. LEVOTHYROXINE SODIUM [Concomitant]
     Indication: THYROID DISORDER
     Dosage: 50 UG, QD
  8. TAMSULOSIN HCL [Concomitant]
     Dosage: .4 MG, QD
  9. VITAMIN D [Concomitant]
     Dosage: 50000 IU, 2/M

REACTIONS (3)
  - HIP FRACTURE [None]
  - INJECTION SITE HAEMATOMA [None]
  - FALL [None]
